FAERS Safety Report 8233792-4 (Version None)
Quarter: 2012Q1

REPORT INFORMATION
  Report Type: 
  Country: None (occurrence: None)
  Receive Date: 20120326
  Receipt Date: 20120316
  Transmission Date: 20120608
  Serious: Yes (Hospitalization)
  Sender: FDA-Public Use
  Company Number: US-JNJFOC-20120310018

PATIENT
  Age: 24 Year
  Sex: Female

DRUGS (2)
  1. ENOXAPARIN [Suspect]
     Indication: ANTICOAGULANT THERAPY
     Route: 050
  2. ASPIRIN [Suspect]
     Indication: ANTICOAGULANT THERAPY
     Route: 065

REACTIONS (2)
  - MATERNAL EXPOSURE DURING PREGNANCY [None]
  - ISCHAEMIC STROKE [None]
